FAERS Safety Report 15194834 (Version 2)
Quarter: 2018Q3

REPORT INFORMATION
  Report Type: Spontaneous
  Country: JP (occurrence: JP)
  Receive Date: 20180725
  Receipt Date: 20180726
  Transmission Date: 20181010
  Serious: Yes (Other)
  Sender: FDA-Public Use
  Company Number: JP-ROCHE-2158831

PATIENT
  Age: 6 Decade
  Sex: Female

DRUGS (3)
  1. CISPLATIN. [Concomitant]
     Active Substance: CISPLATIN
     Indication: OESOPHAGEAL CARCINOMA
     Dosage: DOSAGE IS UNCERTAIN. ?ADMINISTRATION PERIOD: 2 COURSE
     Route: 041
  2. HERCEPTIN [Suspect]
     Active Substance: TRASTUZUMAB
     Indication: OESOPHAGEAL CARCINOMA
     Dosage: DOSAGE IS UNCERTAIN. ?ADMINISTRATION PERIOD: 2 COURSE
     Route: 041
  3. 5?FU [Concomitant]
     Active Substance: FLUOROURACIL
     Indication: OESOPHAGEAL CARCINOMA
     Dosage: DOSAGE IS UNCERTAIN. ?ADMINISTRATION PERIOD: 2 COURSE
     Route: 041

REACTIONS (2)
  - Chylothorax [Recovered/Resolved]
  - Off label use [Unknown]
